FAERS Safety Report 7003707-5 (Version None)
Quarter: 2010Q3

REPORT INFORMATION
  Report Type: 
  Country: None (occurrence: None)
  Receive Date: 20100920
  Receipt Date: 20090616
  Transmission Date: 20110219
  Serious: No
  Sender: FDA-Public Use
  Company Number: US-WYE-H09428009

PATIENT
  Sex: Female
  Weight: 68.1 kg

DRUGS (4)
  1. PROTONIX [Suspect]
     Indication: EROSIVE OESOPHAGITIS
     Route: 048
     Dates: start: 20090401, end: 20090501
  2. PROTONIX [Suspect]
     Route: 048
     Dates: start: 20090501
  3. PROTONIX [Suspect]
     Dosage: UNKNOWN
     Route: 042
     Dates: start: 20090401, end: 20090401
  4. THYROID TAB [Concomitant]

REACTIONS (3)
  - MICTURITION URGENCY [None]
  - URETHRAL PAIN [None]
  - URINARY TRACT DISORDER [None]
